FAERS Safety Report 5534474-X (Version None)
Quarter: 2007Q4

REPORT INFORMATION
  Report Type: 
  Country: None (occurrence: None)
  Receive Date: 20071119
  Receipt Date: 20070725
  Transmission Date: 20080405
  Serious: No
  Sender: FDA-Public Use
  Company Number: TPA2007A01566

PATIENT
  Age: 74 Year
  Sex: Male
  Weight: 97.5234 kg

DRUGS (5)
  1. ROZEREM [Suspect]
     Indication: INSOMNIA
     Dosage: 8 MG, QHS, PER ORAL
     Route: 048
     Dates: start: 20070724
  2. ZOCOR [Concomitant]
  3. LEXAPRO [Concomitant]
  4. OMEPRAZOLE [Concomitant]
  5. FLOMAX [Concomitant]

REACTIONS (3)
  - NERVOUSNESS [None]
  - RESTLESSNESS [None]
  - TREMOR [None]
